FAERS Safety Report 8643855 (Version 3)
Quarter: 2013Q4

REPORT INFORMATION
  Report Type: Spontaneous
  Country: SK (occurrence: SK)
  Receive Date: 20120629
  Receipt Date: 20131031
  Transmission Date: 20140711
  Serious: Yes (Hospitalization)
  Sender: FDA-Public Use
  Company Number: SK-009507513-1206USA04452

PATIENT
  Age: 15 Year
  Sex: Female
  Weight: 55 kg

DRUGS (4)
  1. SINGULAIR [Suspect]
     Dosage: 10 MG, UNK
     Route: 048
     Dates: start: 20120127, end: 201205
  2. AERIUS (DESLORATADINE) [Concomitant]
     Dosage: 5 MG, QD
  3. KETOTIFEN FUMARATE [Concomitant]
     Dosage: UNK UNK, QD
  4. FLIXOTIDE [Concomitant]
     Dosage: 250 ?G, BID

REACTIONS (5)
  - Autonomic nervous system imbalance [Recovering/Resolving]
  - Nausea [Recovering/Resolving]
  - Asthenia [Recovering/Resolving]
  - Abdominal discomfort [Recovering/Resolving]
  - Vestibular disorder [Recovering/Resolving]
